FAERS Safety Report 16050118 (Version 1)
Quarter: 2019Q1

REPORT INFORMATION
  Report Type: Spontaneous
  Country: PL (occurrence: PL)
  Receive Date: 20190308
  Receipt Date: 20190308
  Transmission Date: 20190418
  Serious: Yes (Other)
  Sender: FDA-Public Use
  Company Number: PL-ROCHE-2278575

PATIENT
  Age: 8 Year
  Sex: Male

DRUGS (7)
  1. IMMUNOGLOBULIN [Suspect]
     Active Substance: HUMAN IMMUNOGLOBULIN G
     Indication: THROMBOCYTOPENIA
     Route: 065
  2. DANAZOL. [Suspect]
     Active Substance: DANAZOL
     Indication: THROMBOCYTOPENIA
     Route: 065
  3. CELLCEPT [Suspect]
     Active Substance: MYCOPHENOLATE MOFETIL\MYCOPHENOLATE MOFETIL HYDROCHLORIDE
     Indication: THROMBOCYTOPENIA
     Route: 065
  4. SOLU-MEDROL [Suspect]
     Active Substance: METHYLPREDNISOLONE SODIUM SUCCINATE
     Indication: THROMBOCYTOPENIA
     Route: 065
  5. ENCORTON [Suspect]
     Active Substance: PREDNISONE
     Indication: THROMBOCYTOPENIA
     Route: 065
  6. CICLOSPORIN A [Suspect]
     Active Substance: CYCLOSPORINE
     Indication: THROMBOCYTOPENIA
     Route: 065
  7. IMMUNOGLOBULIN [Suspect]
     Active Substance: HUMAN IMMUNOGLOBULIN G
     Indication: THROMBOCYTOPENIA
     Route: 065

REACTIONS (2)
  - Cushingoid [Unknown]
  - Fat tissue increased [Unknown]

NARRATIVE: CASE EVENT DATE: 201605
